FAERS Safety Report 8313176-0 (Version None)
Quarter: 2012Q2

REPORT INFORMATION
  Report Type: 
  Country: None (occurrence: None)
  Receive Date: 20120424
  Receipt Date: 20120410
  Transmission Date: 20120825
  Serious: Yes (Hospitalization)
  Sender: FDA-Public Use
  Company Number: E2B_00000201

PATIENT
  Age: 1 Day
  Sex: Female
  Weight: 3.3 kg

DRUGS (1)
  1. LAMOTRIGINE [Suspect]
     Indication: EPILEPSY
     Dosage: 450 MG (150 MA,3 IN 1 D),TRANSPLACENTAL
     Route: 064
     Dates: start: 20110218

REACTIONS (5)
  - CYANOSIS NEONATAL [None]
  - MATERNAL DRUGS AFFECTING FOETUS [None]
  - BRADYCARDIA NEONATAL [None]
  - OXYGEN SATURATION DECREASED [None]
  - INFANTILE APNOEIC ATTACK [None]
